FAERS Safety Report 7127958-4 (Version None)
Quarter: 2010Q4

REPORT INFORMATION
  Report Type: 
  Country: None (occurrence: None)
  Receive Date: 20101130
  Receipt Date: 20101117
  Transmission Date: 20110411
  Serious: Yes (Disabling)
  Sender: FDA-Public Use
  Company Number: IL-NAPPMUNDI-GBR-2010-0007398

PATIENT
  Sex: Female

DRUGS (2)
  1. BUTRANS 20MG TRANSDERMAL PATCH [Suspect]
     Indication: PRODUCT USED FOR UNKNOWN INDICATION
     Dosage: 20 MCG, Q1H
     Route: 062
     Dates: start: 20101110
  2. PERCOCET [Concomitant]

REACTIONS (1)
  - PARESIS [None]
